FAERS Safety Report 4815888-X (Version None)
Quarter: 2005Q4

REPORT INFORMATION
  Report Type: 
  Country: None (occurrence: None)
  Receive Date: 20051031
  Receipt Date: 20051021
  Transmission Date: 20060501
  Serious: Yes (Other)
  Sender: FDA-Public Use
  Company Number: FR-JNJFOC-20051000728

PATIENT
  Sex: Female
  Weight: 61 kg

DRUGS (6)
  1. RISPERDAL [Suspect]
     Route: 048
  2. RISPERDAL [Suspect]
     Indication: BIPOLAR DISORDER
     Route: 048
  3. TERALITHE [Concomitant]
     Indication: SLEEP DISORDER
     Route: 065
  4. TERALITHE [Concomitant]
     Indication: ANXIETY
     Route: 065
  5. TRANXENE [Concomitant]
     Indication: SLEEP DISORDER
     Route: 065
  6. TRANXENE [Concomitant]
     Indication: ANXIETY
     Route: 065

REACTIONS (6)
  - AKINESIA [None]
  - BALANCE DISORDER [None]
  - DYSKINESIA [None]
  - DYSPHONIA [None]
  - GAIT DISTURBANCE [None]
  - TREMOR [None]
